FAERS Safety Report 15151066 (Version 2)
Quarter: 2019Q3

REPORT INFORMATION
  Report Type: Spontaneous
  Country: US (occurrence: US)
  Receive Date: 20180716
  Receipt Date: 20190917
  Transmission Date: 20191004
  Serious: No
  Sender: FDA-Public Use
  Company Number: US-SA-2018SA188052

PATIENT
  Age: 47 Year
  Sex: Male

DRUGS (1)
  1. DUPIXENT [Suspect]
     Active Substance: DUPILUMAB
     Dosage: 300 MG, QOW
     Route: 058
     Dates: start: 20180510

REACTIONS (5)
  - Dry skin [Unknown]
  - Eyelid irritation [Unknown]
  - Lacrimation increased [Unknown]
  - Menstrual disorder [Unknown]
  - Fear of injection [Unknown]
